FAERS Safety Report 18814709 (Version 1)
Quarter: 2021Q1

REPORT INFORMATION
  Report Type: Other
  Country: CA (occurrence: CA)
  Receive Date: 20210201
  Receipt Date: 20210201
  Transmission Date: 20210419
  Serious: Yes (Hospitalization)
  Sender: FDA-Public Use
  Company Number: CA-APOTEX-2021AP001865

PATIENT
  Age: 36 Year
  Sex: Female

DRUGS (2)
  1. APO?ONDANSETRON [Suspect]
     Active Substance: ONDANSETRON HYDROCHLORIDE
     Indication: CYCLIC VOMITING SYNDROME
  2. APO?ONDANSETRON [Suspect]
     Active Substance: ONDANSETRON HYDROCHLORIDE
     Indication: GASTROINTESTINAL HYPOMOTILITY
     Dosage: 8 MILLIGRAM, PRN
     Route: 065

REACTIONS (3)
  - Drug ineffective [Recovered/Resolved]
  - Vomiting [Recovered/Resolved]
  - Product solubility abnormal [Recovered/Resolved]
